FAERS Safety Report 5216014-8 (Version None)
Quarter: 2007Q1

REPORT INFORMATION
  Report Type: 
  Country: None (occurrence: None)
  Receive Date: 20061122
  Receipt Date: 20060303
  Transmission Date: 20070707
  Serious: Yes (Other)
  Sender: FDA-Public Use
  Company Number: 2006032629

PATIENT
  Age: 85 Year
  Sex: Female
  Weight: 58.9676 kg

DRUGS (2)
  1. LIPITOR [Suspect]
     Indication: BLOOD CHOLESTEROL INCREASED
     Dosage: 5 MG (10 MG, 1/2 DAILY)
  2. AMBIEN [Concomitant]

REACTIONS (4)
  - ANGINA PECTORIS [None]
  - BODY HEIGHT DECREASED [None]
  - HYPERTENSION [None]
  - OSTEOPOROSIS [None]
